FAERS Safety Report 8578696-2 (Version None)
Quarter: 2012Q3

REPORT INFORMATION
  Report Type: 
  Country: None (occurrence: None)
  Receive Date: 20120726
  Receipt Date: 20120711
  Transmission Date: 20120928
  Serious: Yes (Other)
  Sender: FDA-Public Use
  Company Number: TPA2012A01491

PATIENT
  Age: 77 Year
  Sex: Male
  Weight: 106.5953 kg

DRUGS (3)
  1. METFORMIN HYDROCHLORIDE [Suspect]
     Dates: start: 20061113
  2. GLYBURIDE [Concomitant]
  3. ACTOS [Suspect]
     Indication: TYPE 2 DIABETES MELLITUS
     Dates: start: 20070309, end: 20090630

REACTIONS (2)
  - TRANSITIONAL CELL CARCINOMA [None]
  - BLADDER CANCER [None]
